FAERS Safety Report 6817830-9 (Version None)
Quarter: 2010Q3

REPORT INFORMATION
  Report Type: 
  Country: None (occurrence: None)
  Receive Date: 20100706
  Receipt Date: 20100623
  Transmission Date: 20110219
  Serious: Yes (Hospitalization)
  Sender: FDA-Public Use
  Company Number: US-MERCK-0906USA01127B1

PATIENT
  Age: 8 Month
  Sex: Female

DRUGS (9)
  1. MAXALT [Suspect]
     Indication: MIGRAINE
     Route: 064
  2. VITAMINS (UNSPECIFIED) [Concomitant]
     Route: 064
  3. FLUOXETINE [Concomitant]
     Route: 064
  4. ADVAIR DISKUS 100/50 [Concomitant]
     Route: 064
  5. ALBUTEROL [Concomitant]
     Route: 064
  6. TYLENOL (CAPLET) [Concomitant]
     Route: 064
  7. PROCARDIA [Concomitant]
     Route: 064
  8. TERBUTALINE SULFATE [Concomitant]
     Route: 064
  9. BETAMETHASONE [Concomitant]
     Route: 064

REACTIONS (2)
  - DRUG EXPOSURE DURING PREGNANCY [None]
  - PREMATURE BABY [None]
